FAERS Safety Report 10675983 (Version 3)
Quarter: 2015Q1

REPORT INFORMATION
  Report Type: Report from Study
  Country: US (occurrence: US)
  Receive Date: 20141225
  Receipt Date: 20150113
  Transmission Date: 20150720
  Serious: Yes (Hospitalization, Other)
  Sender: FDA-Public Use
  Company Number: US-SA-2014SA174024

PATIENT
  Age: 62 Year
  Sex: Female
  Weight: 88.45 kg

DRUGS (3)
  1. NEXIUM [Concomitant]
     Active Substance: ESOMEPRAZOLE MAGNESIUM
     Indication: GASTROOESOPHAGEAL REFLUX DISEASE
     Dosage: STARTED 10 YEARS BACK
  2. METFORMIN [Concomitant]
     Active Substance: METFORMIN HYDROCHLORIDE
     Indication: DIABETES MELLITUS
     Dosage: 500 X 2 FOR 2000 MG
  3. LANTUS [Suspect]
     Active Substance: INSULIN GLARGINE
     Indication: TYPE 2 DIABETES MELLITUS
     Dosage: 6 SHOTS A DAY DOSE:65 UNIT(S)
     Route: 065
     Dates: start: 201304, end: 201411

REACTIONS (7)
  - Malaise [Unknown]
  - Blood glucose abnormal [Unknown]
  - Drug dose omission [Unknown]
  - Hyperglycaemia [Not Recovered/Not Resolved]
  - Feeling abnormal [Unknown]
  - Drug administration error [Unknown]
  - Rheumatoid arthritis [Unknown]

NARRATIVE: CASE EVENT DATE: 20141225
